FAERS Safety Report 4416008-6 (Version None)
Quarter: 2004Q3

REPORT INFORMATION
  Report Type: 
  Country: None (occurrence: None)
  Receive Date: 20040802
  Receipt Date: 20040727
  Transmission Date: 20050211
  Serious: Yes (Disabling)
  Sender: FDA-Public Use
  Company Number: 04P-056-0263281-00

PATIENT
  Age: 54 Year
  Sex: Male
  Weight: 84 kg

DRUGS (7)
  1. NORVIR [Suspect]
     Indication: HIV INFECTION
     Dosage: 200 MG, 1 IN 1 D, PER ORAL
     Route: 048
     Dates: start: 20031226
  2. BACTRIM [Suspect]
     Dosage: 1 DOSAGE FORMS, 1 IN 1 D, PER ORAL
     Route: 048
     Dates: start: 19920701
  3. LAMIVUDINE [Suspect]
     Indication: HIV INFECTION
     Dosage: 300 MG, 1 IN 1 PER D, PER ORAL
     Route: 048
     Dates: start: 20031226
  4. AMPRENAVIR [Suspect]
     Indication: HIV INFECTION
     Dosage: 900 MG, 1 IN 1 D, PER ORAL
     Route: 048
     Dates: start: 20031226
  5. VIREAD [Suspect]
     Indication: HIV INFECTION
     Dosage: 300 MG, 1 IN 1 D, PER ORAL
     Route: 048
     Dates: start: 20031226
  6. TRAMADOL HYDROCHLORIDE [Concomitant]
  7. MORPHINE SULFATE [Concomitant]

REACTIONS (10)
  - BLINDNESS [None]
  - CYTOMEGALOVIRUS CHORIORETINITIS [None]
  - ERYTHEMA OF EYELID [None]
  - EYE PAIN [None]
  - HEADACHE [None]
  - PHOTOPHOBIA [None]
  - RETINAL DETACHMENT [None]
  - RHINITIS [None]
  - UVEITIS [None]
  - VISUAL ACUITY REDUCED [None]
